FAERS Safety Report 25736875 (Version 1)
Quarter: 2025Q3

REPORT INFORMATION
  Report Type: Spontaneous
  Country: US (occurrence: None)
  Receive Date: 20250828
  Receipt Date: 20250828
  Transmission Date: 20251020
  Serious: Yes (Hospitalization)
  Sender: FDA-CTU
  Company Number: None

PATIENT
  Age: 73 Year
  Sex: Female

DRUGS (1)
  1. TAVNEOS [Suspect]
     Active Substance: AVACOPAN
     Route: 048
     Dates: start: 20250619

REACTIONS (4)
  - Fall [None]
  - Asthenia [None]
  - Blood potassium abnormal [None]
  - Electrolyte imbalance [None]

NARRATIVE: CASE EVENT DATE: 20250828
